FAERS Safety Report 24724930 (Version 1)
Quarter: 2024Q4

REPORT INFORMATION
  Report Type: Spontaneous
  Country: JP (occurrence: JP)
  Receive Date: 20241212
  Receipt Date: 20241212
  Transmission Date: 20250115
  Serious: Yes (Other)
  Sender: GENMAB
  Company Number: JP-GENMAB-2024-02699

PATIENT
  Age: 5 Decade
  Sex: Female
  Weight: 60 kg

DRUGS (9)
  1. EPKINLY [Suspect]
     Active Substance: EPCORITAMAB-BYSP
     Indication: Diffuse large B-cell lymphoma refractory
     Dosage: 0.16 MILLIGRAM, SINGLE
     Route: 058
     Dates: start: 20240716, end: 20240716
  2. EPKINLY [Suspect]
     Active Substance: EPCORITAMAB-BYSP
     Dosage: 0.8 MILLIGRAM, SINGLE
     Route: 058
     Dates: start: 20240723, end: 20240723
  3. EPKINLY [Suspect]
     Active Substance: EPCORITAMAB-BYSP
     Dosage: 48 MILLIGRAM
     Route: 058
     Dates: start: 20240730
  4. DEXAMETHASONE [Concomitant]
     Active Substance: DEXAMETHASONE
     Indication: Premedication
     Dosage: 20 MILLIGRAM, FROM THE FIRST TO THE FOURTH DOSE IN CYCLE 1, ON DAY 1, DAY 2, DAY 3 AND DAY 4 OF ADMI
     Dates: start: 20240716, end: 20240816
  5. ACETAMINOPHEN [Concomitant]
     Active Substance: ACETAMINOPHEN
     Indication: Premedication
     Dosage: UNK, FROM THE FIRST TO THE FOURTH DOSE IN CYCLE 1, ON DAY 1 OF ADMINISTRATION OF EPKINLY
     Dates: start: 20240716, end: 20240813
  6. ANTIHISTAMINES NOS [Concomitant]
     Active Substance: ANTIHISTAMINES NOS
     Indication: Premedication
     Dosage: UNK, FROM THE FIRST TO THE FOURTH DOSE IN CYCLE 1, ON DAY 1 OF ADMINISTRATION OF EPKINLY
     Dates: start: 20240716, end: 20240813
  7. GEMCITABINE [Concomitant]
     Active Substance: GEMCITABINE
     Indication: Diffuse large B-cell lymphoma refractory
     Dosage: UNK, DUE TO GCD THERAPY, BLOOD CELL RECREASED AND OTHERS, THE PATIENT WAS ONLY ABLE TO RECEIVE UP TO
     Dates: start: 202407, end: 20240716
  8. CARBOPLATIN [Concomitant]
     Active Substance: CARBOPLATIN
     Indication: Diffuse large B-cell lymphoma refractory
     Dosage: UNK, DUE TO GCD THERAPY, BLOOD CELL RECREASED AND OTHERS, THE PATIENT WAS ONLY ABLE TO RECEIVE UP TO
     Dates: start: 202407, end: 20240716
  9. DEXAMETHASONE [Concomitant]
     Active Substance: DEXAMETHASONE
     Indication: Diffuse large B-cell lymphoma refractory
     Dosage: UNK, DUE TO GCD THERAPY, BLOOD CELL RECREASED AND OTHERS, THE PATIENT WAS ONLY ABLE TO RECEIVE UP TO
     Dates: start: 202407, end: 20240716

REACTIONS (7)
  - Ureteric obstruction [Unknown]
  - Hydronephrosis [Unknown]
  - Tumour pseudoprogression [Unknown]
  - Cytokine release syndrome [Unknown]
  - Full blood count decreased [Unknown]
  - Pyrexia [Unknown]
  - Off label use [Unknown]

NARRATIVE: CASE EVENT DATE: 20240101
